FAERS Safety Report 10199694 (Version 1)
Quarter: 2014Q2

REPORT INFORMATION
  Report Type: Spontaneous
  Country: US (occurrence: US)
  Receive Date: 20140527
  Receipt Date: 20140527
  Transmission Date: 20141212
  Serious: Yes (Other)
  Sender: FDA-Public Use
  Company Number: US-TEVA-483608USA

PATIENT
  Sex: Female

DRUGS (1)
  1. PACLITAXEL [Suspect]
     Indication: BREAST CANCER
     Dosage: 140MG/5ML OVER 2.75 HOURS
     Route: 042
     Dates: start: 201402, end: 20140505

REACTIONS (5)
  - Psychotic behaviour [Unknown]
  - Hallucination [Unknown]
  - Hallucination, auditory [Unknown]
  - Paranoia [Unknown]
  - Abnormal behaviour [Unknown]
